FAERS Safety Report 15407003 (Version 1)
Quarter: 2018Q3

REPORT INFORMATION
  Report Type: Spontaneous
  Country: US (occurrence: US)
  Receive Date: 20180919
  Receipt Date: 20180919
  Transmission Date: 20181010
  Serious: No
  Sender: FDA-Public Use
  Company Number: None

PATIENT
  Sex: Female

DRUGS (13)
  1. CONSTULOSE 10GM/15 [Concomitant]
  2. LEVOTHYROXIN 100MCG [Concomitant]
  3. VITAMIN B12 500MCG [Concomitant]
  4. LEVEMIR [Concomitant]
     Active Substance: INSULIN DETEMIR
  5. DOCQLACE 100MG [Concomitant]
  6. ONDANSETRON 8MG [Concomitant]
     Active Substance: ONDANSETRON
  7. SIMVASTATIN 80MG [Concomitant]
     Active Substance: SIMVASTATIN
  8. CABOMETYX [Suspect]
     Active Substance: CABOZANTINIB S-MALATE
     Indication: RENAL CANCER
     Route: 048
     Dates: start: 20180329
  9. BUMETANIDE 0.5MG [Concomitant]
  10. MORPHINE 50MG/ML [Concomitant]
  11. VITAMIN D3 2000UNITS [Concomitant]
  12. METAXALONE 800MG [Concomitant]
  13. MUCINEX [Concomitant]
     Active Substance: GUAIFENESIN

REACTIONS (1)
  - Surgery [None]
